FAERS Safety Report 15705633 (Version 1)
Quarter: 2018Q4

REPORT INFORMATION
  Report Type: Other
  Country: CA (occurrence: CA)
  Receive Date: 20181210
  Receipt Date: 20181210
  Transmission Date: 20190205
  Serious: Yes (Death)
  Sender: FDA-Public Use
  Company Number: CA-HLSUS-2018-CA-001624

PATIENT
  Age: 59 Year
  Sex: Male
  Weight: 110 kg

DRUGS (11)
  1. LANTUS [Concomitant]
     Active Substance: INSULIN GLARGINE
     Dosage: 1000/ML AS DIRECTED
  2. GLYBURIDE. [Concomitant]
     Active Substance: GLYBURIDE
     Dosage: 10 MG TWICE DAILY
  3. DIVALPROEX [Concomitant]
     Active Substance: DIVALPROEX SODIUM
     Dosage: 500 MG ONCE DAILY
     Route: 048
     Dates: end: 20180927
  4. CHLORTHIAZIDE [Concomitant]
     Active Substance: CHLOROTHIAZIDE
     Dosage: 25 MG ONCE DAILY
  5. SYNTHROID [Concomitant]
     Active Substance: LEVOTHYROXINE SODIUM
     Dosage: 125 MCG ONCE DAILY
  6. CLOZARIL [Suspect]
     Active Substance: CLOZAPINE
     Indication: SCHIZOPHRENIA
     Dosage: 400 MG DAILY
     Route: 048
     Dates: start: 19980512, end: 20180927
  7. FERROUS SULFATE. [Concomitant]
     Active Substance: FERROUS SULFATE
  8. CLONAZEPAM. [Concomitant]
     Active Substance: CLONAZEPAM
     Dosage: 1 MG
     Route: 048
     Dates: end: 20180927
  9. LIPITOR [Concomitant]
     Active Substance: ATORVASTATIN CALCIUM
     Dosage: 80 MG ONCE DAILY
  10. JENTADUETO [Concomitant]
     Active Substance: LINAGLIPTIN\METFORMIN HYDROCHLORIDE
     Dosage: 25-1000 MG TWICE DAILY
     Route: 048
  11. RAMIPRIL. [Concomitant]
     Active Substance: RAMIPRIL
     Dosage: 10 MG ONCE DAILY

REACTIONS (8)
  - Blood triglycerides increased [None]
  - Blood creatinine increased [None]
  - Glomerular filtration rate decreased [None]
  - High density lipoprotein decreased [None]
  - Metabolic disorder [None]
  - Blood glucose increased [None]
  - Death [Fatal]
  - Glycosylated haemoglobin increased [None]

NARRATIVE: CASE EVENT DATE: 20180920
